FAERS Safety Report 25512792 (Version 2)
Quarter: 2025Q3

REPORT INFORMATION
  Report Type: Spontaneous
  Country: US (occurrence: US)
  Receive Date: 20250703
  Receipt Date: 20250715
  Transmission Date: 20251021
  Serious: No
  Sender: AMGEN
  Company Number: US-AMGEN-USASP2025126312

PATIENT
  Age: 73 Year
  Sex: Female
  Weight: 74.376 kg

DRUGS (8)
  1. REPATHA [Suspect]
     Active Substance: EVOLOCUMAB
     Indication: Blood cholesterol increased
     Dosage: 140 MILLIGRAM, Q2WK
     Route: 058
     Dates: start: 20250310, end: 20250616
  2. PREDNISONE [Suspect]
     Active Substance: PREDNISONE
     Indication: Product used for unknown indication
     Route: 065
  3. OZEMPIC [Concomitant]
     Active Substance: SEMAGLUTIDE
  4. CELEBREX [Concomitant]
     Active Substance: CELECOXIB
  5. TYLENOL [Concomitant]
     Active Substance: ACETAMINOPHEN
  6. MAGNESIUM [Concomitant]
     Active Substance: MAGNESIUM
  7. ADVIL [Concomitant]
     Active Substance: IBUPROFEN
  8. ATORVASTATIN [Concomitant]
     Active Substance: ATORVASTATIN

REACTIONS (11)
  - Arthropod bite [Unknown]
  - Injection site urticaria [Recovered/Resolved]
  - Injection site erythema [Unknown]
  - Injection site pruritus [Unknown]
  - Urticaria [Unknown]
  - Limb discomfort [Unknown]
  - Joint swelling [Unknown]
  - Weight increased [Unknown]
  - Dry skin [Unknown]
  - Hyperhidrosis [Unknown]
  - Arthritis [Unknown]

NARRATIVE: CASE EVENT DATE: 20250301
